FAERS Safety Report 4354063-2 (Version None)
Quarter: 2004Q2

REPORT INFORMATION
  Report Type: 
  Country: None (occurrence: None)
  Receive Date: 20040503
  Receipt Date: 20040422
  Transmission Date: 20050107
  Serious: Yes (Hospitalization)
  Sender: FDA-Public Use
  Company Number: ES-JNJFOC-20040404872

PATIENT
  Age: 80 Year
  Sex: Female

DRUGS (7)
  1. RISPERDAL [Suspect]
     Indication: DEPRESSION
     Dosage: 3 MG,    IN 1 DAY, ORAL
     Route: 048
     Dates: start: 20040101, end: 20040310
  2. LORAMET (LORMETAZEPAM) TABLETS [Suspect]
     Indication: DEPRESSION
     Dosage: 2 MG,   IN 1 DAY, ORAL
     Route: 048
     Dates: start: 20040101, end: 20040310
  3. LANTANON (MIANSERIN HYDROCHLORIDE) [Suspect]
     Indication: DEPRESSION
     Dosage: 30 MG,   IN 1 DAY, ORAL
     Route: 048
     Dates: start: 20040101, end: 20040310
  4. OPONAF (LACTITOL) SOLUTION [Suspect]
     Indication: ABDOMINAL PAIN
     Dosage: ORAL
     Route: 048
     Dates: start: 20040101, end: 20040310
  5. ADIRO (ACETYLSALICYLIC ACID) [Concomitant]
  6. CO-DIOVAN (CO-DIOVAN) [Concomitant]
  7. VALSARTAN (VALSARTAN) [Concomitant]

REACTIONS (4)
  - DEPRESSED LEVEL OF CONSCIOUSNESS [None]
  - DRUG INTERACTION [None]
  - EXTRAPYRAMIDAL DISORDER [None]
  - RHABDOMYOLYSIS [None]
